FAERS Safety Report 16119217 (Version 1)
Quarter: 2019Q1

REPORT INFORMATION
  Report Type: Spontaneous
  Country: US (occurrence: US)
  Receive Date: 20190326
  Receipt Date: 20190326
  Transmission Date: 20190418
  Serious: No
  Sender: FDA-Public Use
  Company Number: US-AMGEN INC.-USASP2019045431

PATIENT
  Sex: Male

DRUGS (1)
  1. AIMOVIG [Suspect]
     Active Substance: ERENUMAB-AOOE
     Indication: MIGRAINE
     Dosage: 140 MILLIGRAM, QMO
     Route: 065
     Dates: start: 2018

REACTIONS (7)
  - Hypersensitivity [Recovering/Resolving]
  - Cough [Not Recovered/Not Resolved]
  - Wrong technique in product usage process [Unknown]
  - Pain [Recovering/Resolving]
  - Accidental exposure to product [Unknown]
  - Influenza [Recovering/Resolving]
  - Rhinorrhoea [Not Recovered/Not Resolved]

NARRATIVE: CASE EVENT DATE: 2018
